APPROVED DRUG PRODUCT: BUTAPAP
Active Ingredient: ACETAMINOPHEN; BUTALBITAL
Strength: 650MG;50MG
Dosage Form/Route: TABLET;ORAL
Application: A089988 | Product #001
Applicant: MIKART LLC
Approved: Oct 26, 1992 | RLD: No | RS: No | Type: DISCN